FAERS Safety Report 11069824 (Version 1)
Quarter: 2015Q2

REPORT INFORMATION
  Report Type: Spontaneous
  Country: US (occurrence: US)
  Receive Date: 20150427
  Receipt Date: 20150427
  Transmission Date: 20150821
  Serious: No
  Sender: FDA-Public Use
  Company Number: US-MALLINCKRODT-T201404390

PATIENT
  Sex: Female
  Weight: 68.27 kg

DRUGS (1)
  1. HYDROCODONE/ACETAMINOPHEN [Suspect]
     Active Substance: ACETAMINOPHEN\HYDROCODONE
     Indication: BACK PAIN
     Dosage: 10/325 MG, UP TO SIX TIMES DAILY
     Route: 048
     Dates: start: 2014

REACTIONS (4)
  - Diarrhoea [Recovered/Resolved]
  - Dysbacteriosis [Recovered/Resolved]
  - Drug effect decreased [Unknown]
  - Product physical issue [Unknown]

NARRATIVE: CASE EVENT DATE: 2014
